FAERS Safety Report 7702283-9 (Version None)
Quarter: 2011Q3

REPORT INFORMATION
  Report Type: 
  Country: None (occurrence: None)
  Receive Date: 20110822
  Receipt Date: 20110223
  Transmission Date: 20111222
  Serious: No
  Sender: FDA-Public Use
  Company Number: US-BAYER-2011-019097

PATIENT
  Age: 39 Year
  Sex: Male
  Weight: 108.84 kg

DRUGS (2)
  1. MAGNEVIST [Suspect]
     Indication: SYNCOPE
     Dosage: 20 ML, ONCE
     Route: 042
     Dates: start: 20110222, end: 20110222
  2. MAGNEVIST [Suspect]
     Indication: NUCLEAR MAGNETIC RESONANCE IMAGING BRAIN

REACTIONS (3)
  - HYPERSENSITIVITY [None]
  - URTICARIA [None]
  - PRURITUS [None]
